FAERS Safety Report 25214608 (Version 1)
Quarter: 2025Q2

REPORT INFORMATION
  Report Type: Report from Study
  Country: US (occurrence: US)
  Receive Date: 20250418
  Receipt Date: 20250418
  Transmission Date: 20250716
  Serious: No
  Sender: SANDOZ
  Company Number: US-002147023-NVSC2023US054578

PATIENT
  Age: 4 Year
  Sex: Male

DRUGS (2)
  1. OMNITROPE [Suspect]
     Active Substance: SOMATROPIN
     Indication: Short stature
     Dosage: 0.4 MG, QD
     Route: 058
     Dates: start: 20230302
  2. OMNITROPE [Suspect]
     Active Substance: SOMATROPIN
     Indication: Short stature
     Dosage: 0.4 MG, QD
     Route: 058
     Dates: start: 20230302

REACTIONS (5)
  - Diarrhoea [Unknown]
  - Incorrect dose administered [Unknown]
  - Device leakage [Unknown]
  - Device breakage [Unknown]
  - Device mechanical issue [Unknown]

NARRATIVE: CASE EVENT DATE: 20230302
